FAERS Safety Report 25806225 (Version 1)
Quarter: 2025Q3

REPORT INFORMATION
  Report Type: Spontaneous
  Country: US (occurrence: US)
  Receive Date: 20250916
  Receipt Date: 20250916
  Transmission Date: 20251021
  Serious: Yes (Hospitalization)
  Sender: ALEXION PHARMACEUTICALS
  Company Number: US-AstraZeneca-CH-00946754AP

PATIENT

DRUGS (3)
  1. TEZSPIRE [Suspect]
     Active Substance: TEZEPELUMAB-EKKO
     Route: 065
  2. TEZSPIRE [Suspect]
     Active Substance: TEZEPELUMAB-EKKO
  3. PROLIA [Concomitant]
     Active Substance: DENOSUMAB
     Route: 065

REACTIONS (12)
  - Product dose omission issue [Unknown]
  - Nasopharyngitis [Unknown]
  - Disease complication [Unknown]
  - Ear infection [Unknown]
  - Product quality issue [Unknown]
  - Pharyngitis [Unknown]
  - Vulvovaginal pruritus [Unknown]
  - Illness [Unknown]
  - Device issue [Unknown]
  - Device deployment issue [Unknown]
  - Device leakage [Unknown]
  - Device delivery system issue [Unknown]
